FAERS Safety Report 15084503 (Version 1)
Quarter: 2018Q2

REPORT INFORMATION
  Report Type: Spontaneous
  Country: JP (occurrence: JP)
  Receive Date: 20180628
  Receipt Date: 20180628
  Transmission Date: 20180711
  Serious: Yes (Other)
  Sender: FDA-Public Use
  Company Number: JP-BAYER-2018-119412

PATIENT
  Sex: Female

DRUGS (1)
  1. YAZ [Suspect]
     Active Substance: DROSPIRENONE\ETHINYL ESTRADIOL
     Indication: MENORRHAGIA
     Route: 048

REACTIONS (3)
  - Product use in unapproved indication [None]
  - Off label use [None]
  - Arrhythmia [None]
